FAERS Safety Report 7552339-9 (Version None)
Quarter: 2011Q2

REPORT INFORMATION
  Report Type: 
  Country: None (occurrence: None)
  Receive Date: 20110616
  Receipt Date: 20070727
  Transmission Date: 20111010
  Serious: Yes (Hospitalization)
  Sender: FDA-Public Use
  Company Number: PHHO2007AT01215

PATIENT
  Sex: Male

DRUGS (5)
  1. TEGRETOL [Suspect]
     Route: 048
     Dates: start: 20061216
  2. TRUXAL [Suspect]
     Dosage: 200 MG, QD
     Dates: start: 20061211, end: 20061212
  3. TRUXAL [Suspect]
     Dosage: 250 MG, QD
     Dates: start: 20061213, end: 20061215
  4. CLOZAPINE [Suspect]
  5. TRUXAL [Suspect]
     Dosage: 200 MG, QD
     Dates: start: 20061216

REACTIONS (4)
  - GRAND MAL CONVULSION [None]
  - INSOMNIA [None]
  - MANIA [None]
  - ENURESIS [None]
